FAERS Safety Report 4347589-9 (Version None)
Quarter: 2004Q1

REPORT INFORMATION
  Report Type: 
  Country: None (occurrence: None)
  Receive Date: 20040325
  Receipt Date: 20040202
  Transmission Date: 20041129
  Serious: No
  Sender: FDA-Public Use
  Company Number: US_0402100448

PATIENT
  Sex: Female
  Weight: 50 kg

DRUGS (5)
  1. FORTEO [Suspect]
     Indication: OSTEOPOROSIS
     Dosage: 20 UG/DAY
     Dates: start: 20031201
  2. TYLENOL [Concomitant]
  3. NAPROXEN [Concomitant]
  4. ALEVE [Concomitant]
  5. METAMUCIL-2 [Concomitant]

REACTIONS (5)
  - ARTHRALGIA [None]
  - BACK PAIN [None]
  - CONSTIPATION [None]
  - HEART RATE INCREASED [None]
  - MUSCLE CRAMP [None]
